FAERS Safety Report 6337844-5 (Version None)
Quarter: 2009Q3

REPORT INFORMATION
  Report Type: 
  Country: None (occurrence: None)
  Receive Date: 20090902
  Receipt Date: 20090828
  Transmission Date: 20100115
  Serious: Yes (Hospitalization)
  Sender: FDA-Public Use
  Company Number: A0805381A

PATIENT
  Age: 44 Year
  Sex: Female

DRUGS (2)
  1. EPZICOM [Suspect]
     Indication: HIV INFECTION
     Route: 048
  2. VIRAMUNE [Suspect]
     Indication: HIV INFECTION
     Dosage: 200MG UNKNOWN
     Route: 065

REACTIONS (1)
  - MYOCARDIAL INFARCTION [None]
